FAERS Safety Report 6046339-8 (Version None)
Quarter: 2009Q1

REPORT INFORMATION
  Report Type: 
  Country: None (occurrence: None)
  Receive Date: 20090122
  Receipt Date: 20090115
  Transmission Date: 20090719
  Serious: Yes (Other)
  Sender: FDA-Public Use
  Company Number: US-ASTRAZENECA-2009UW01538

PATIENT
  Age: 59 Year
  Sex: Female
  Weight: 74.8 kg

DRUGS (7)
  1. CRESTOR [Suspect]
     Route: 048
  2. ALTACE [Concomitant]
  3. ASPIRIN [Concomitant]
  4. ATENOLOL [Concomitant]
  5. EFFEXOR XR [Concomitant]
  6. OMEPRAZOLE [Concomitant]
  7. NORVASC [Concomitant]

REACTIONS (4)
  - DISTURBANCE IN ATTENTION [None]
  - FATIGUE [None]
  - MUSCLE SPASMS [None]
  - MYALGIA [None]
